FAERS Safety Report 19273484 (Version 1)
Quarter: 2021Q2

REPORT INFORMATION
  Report Type: Spontaneous
  Country: GB (occurrence: GB)
  Receive Date: 20210519
  Receipt Date: 20210519
  Transmission Date: 20210717
  Serious: Yes (Other)
  Sender: FDA-Public Use
  Company Number: GB-SUN PHARMACEUTICAL INDUSTRIES LTD-2021RR-296983

PATIENT
  Age: 50 Year
  Sex: Male

DRUGS (1)
  1. CODEINE [Suspect]
     Active Substance: CODEINE
     Indication: ILL-DEFINED DISORDER
     Dosage: 30MG, UNK
     Route: 048

REACTIONS (2)
  - Adverse drug reaction [Recovered/Resolved]
  - Medication error [Unknown]
